APPROVED DRUG PRODUCT: ISOSORBIDE MONONITRATE
Active Ingredient: ISOSORBIDE MONONITRATE
Strength: 30MG
Dosage Form/Route: TABLET, EXTENDED RELEASE;ORAL
Application: A209684 | Product #001
Applicant: ACCORD HEALTHCARE INC
Approved: Oct 24, 2017 | RLD: No | RS: No | Type: DISCN